FAERS Safety Report 9504005 (Version 2)
Quarter: 2013Q3

REPORT INFORMATION
  Report Type: Spontaneous
  Country: JP (occurrence: JP)
  Receive Date: 20130906
  Receipt Date: 20130906
  Transmission Date: 20140515
  Serious: Yes (Life-Threatening, Hospitalization, Other)
  Sender: FDA-Public Use
  Company Number: JP-PFIZER INC-2005076797

PATIENT
  Age: 50 Year
  Sex: Female

DRUGS (4)
  1. NORVASC [Suspect]
     Dosage: 190 MG, UNK
     Route: 048
     Dates: start: 20050516
  2. MEILAX [Suspect]
     Dosage: 16 MG, UNK
     Route: 048
     Dates: start: 20050516
  3. ALESION [Suspect]
     Dosage: 280 MG, UNK
     Route: 048
     Dates: start: 20050516
  4. CLARITIN [Suspect]
     Dosage: 160 MG, UNK
     Route: 048

REACTIONS (4)
  - Intentional overdose [Unknown]
  - Blood pressure decreased [Recovered/Resolved]
  - Metabolic acidosis [Recovering/Resolving]
  - Renal impairment [Unknown]
